FAERS Safety Report 7002076-4 (Version None)
Quarter: 2010Q3

REPORT INFORMATION
  Report Type: 
  Country: None (occurrence: None)
  Receive Date: 20100920
  Receipt Date: 20090824
  Transmission Date: 20110219
  Serious: Yes (Hospitalization)
  Sender: FDA-Public Use
  Company Number: US-ASTRAZENECA-2009UW21068

PATIENT
  Age: 438 Month
  Sex: Male
  Weight: 93.4 kg

DRUGS (2)
  1. SEROQUEL [Suspect]
     Indication: BIPOLAR DISORDER
     Route: 048
     Dates: start: 20060401, end: 20070101
  2. EFFEXOR [Concomitant]

REACTIONS (1)
  - PANCREATITIS [None]
